FAERS Safety Report 8562454-9 (Version None)
Quarter: 2012Q3

REPORT INFORMATION
  Report Type: 
  Country: None (occurrence: None)
  Receive Date: 20120802
  Receipt Date: 20120712
  Transmission Date: 20120928
  Serious: No
  Sender: FDA-Public Use
  Company Number: US-AMGEN-USASP2011005938

PATIENT
  Age: 58 Year
  Sex: Female
  Weight: 93.44 kg

DRUGS (11)
  1. FOSAMAX [Concomitant]
     Dosage: 70 MG, QWK
     Route: 048
  2. LISINOPRIL [Concomitant]
     Dosage: 20 MG, QD
     Route: 048
  3. CALCIUM +VIT D [Concomitant]
     Dosage: 600 MG, QD
     Route: 048
  4. SYNTHROID [Concomitant]
     Dosage: 125 MUG, QD
     Route: 048
  5. ZOCOR [Concomitant]
     Dosage: 40 MG, QD
  6. TREXALL [Concomitant]
     Dosage: 0.8 ML, QWK
     Route: 058
     Dates: start: 20100601
  7. PIROXICAM [Concomitant]
     Dosage: 20 MG, QD
  8. ENBREL [Suspect]
     Indication: RHEUMATOID ARTHRITIS
     Dosage: 50 MG, QWK
     Route: 058
     Dates: start: 20110121, end: 20110204
  9. HYDROCHLOROTHIAZIDE [Concomitant]
     Dosage: 12.5 MG, QD
  10. ASPIRIN [Concomitant]
     Dosage: 81 MG, QD
     Route: 048
  11. ZOLOFT [Concomitant]
     Dosage: UNK UNK, QD

REACTIONS (6)
  - ARTHRALGIA [None]
  - INJECTION SITE ERYTHEMA [None]
  - INJECTION SITE SWELLING [None]
  - INJECTION SITE WARMTH [None]
  - INJECTION SITE PRURITUS [None]
  - PAIN IN EXTREMITY [None]
